FAERS Safety Report 13896374 (Version 1)
Quarter: 2017Q3

REPORT INFORMATION
  Report Type: Spontaneous
  Country: LB (occurrence: LB)
  Receive Date: 20170823
  Receipt Date: 20170823
  Transmission Date: 20171127
  Serious: Yes (Hospitalization)
  Sender: FDA-Public Use
  Company Number: LB-LPDUSPRD-20171150

PATIENT
  Age: 22 Year
  Sex: Female

DRUGS (1)
  1. FERINJECT [Suspect]
     Active Substance: FERRIC CARBOXYMALTOSE
     Dosage: 1000 MG
     Route: 041
     Dates: start: 20170728, end: 20170728

REACTIONS (3)
  - Lip oedema [Unknown]
  - Rash [Unknown]
  - Papule [Unknown]

NARRATIVE: CASE EVENT DATE: 20170728
